FAERS Safety Report 4816516-X (Version None)
Quarter: 2005Q4

REPORT INFORMATION
  Report Type: 
  Country: None (occurrence: None)
  Receive Date: 20051101
  Receipt Date: 20051025
  Transmission Date: 20060501
  Serious: Yes (Hospitalization, Other)
  Sender: FDA-Public Use
  Company Number: PHNU2005DE03553

PATIENT
  Age: 8 Year
  Sex: Male
  Weight: 35 kg

DRUGS (2)
  1. RITALIN [Suspect]
     Dosage: 20 MG, QD
     Route: 048
     Dates: start: 20040101, end: 20050101
  2. ACETAMINOPHEN [Suspect]
     Route: 048
     Dates: start: 20050925, end: 20050925

REACTIONS (3)
  - C-REACTIVE PROTEIN INCREASED [None]
  - OEDEMA MUCOSAL [None]
  - RASH [None]
